FAERS Safety Report 25042178 (Version 1)
Quarter: 2025Q1

REPORT INFORMATION
  Report Type: Spontaneous
  Country: PT (occurrence: PT)
  Receive Date: 20250305
  Receipt Date: 20250305
  Transmission Date: 20250408
  Serious: Yes (Life-Threatening)
  Sender: TEVA
  Company Number: None

PATIENT
  Age: 68 Year
  Sex: Female
  Weight: 58 kg

DRUGS (2)
  1. COTRIMOXAZOLE [Suspect]
     Active Substance: SULFAMETHOXAZOLE\TRIMETHOPRIM
     Indication: Kidney infection
     Dosage: 800+160MG
     Route: 048
     Dates: start: 20250129, end: 20250130
  2. TAMSULOSIN [Concomitant]
     Active Substance: TAMSULOSIN
     Indication: Kidney infection
     Route: 048

REACTIONS (2)
  - Blindness transient [Recovered/Resolved]
  - Mydriasis [Recovered/Resolved]

NARRATIVE: CASE EVENT DATE: 20250129
